FAERS Safety Report 7523514-4 (Version None)
Quarter: 2011Q2

REPORT INFORMATION
  Report Type: 
  Country: None (occurrence: None)
  Receive Date: 20110603
  Receipt Date: 20110527
  Transmission Date: 20111010
  Serious: Yes (Hospitalization)
  Sender: FDA-Public Use
  Company Number: CHPA2011US07362

PATIENT
  Age: 67 Year
  Sex: Female

DRUGS (1)
  1. BENEFIBER W/ WHEAT DEXTRIN [Suspect]
     Dosage: 1 TABLESPOON 4 TIMES A DAY
     Route: 048

REACTIONS (6)
  - FLATULENCE [None]
  - URINARY TRACT INFECTION [None]
  - OVERDOSE [None]
  - BLOOD POTASSIUM DECREASED [None]
  - DIARRHOEA [None]
  - CONSTIPATION [None]
